FAERS Safety Report 25320050 (Version 1)
Quarter: 2025Q2

REPORT INFORMATION
  Report Type: Spontaneous
  Country: DE (occurrence: DE)
  Receive Date: 20250515
  Receipt Date: 20250515
  Transmission Date: 20250717
  Serious: Yes (Other)
  Sender: ELI LILLY AND COMPANY
  Company Number: DE-ELI_LILLY_AND_COMPANY-DE202505005126

PATIENT
  Age: 63 Year
  Sex: Male

DRUGS (4)
  1. HUMALOG [Suspect]
     Active Substance: INSULIN LISPRO
     Indication: Product used for unknown indication
     Route: 065
     Dates: start: 2010
  2. INSULIN GLARGINE [Concomitant]
     Active Substance: INSULIN GLARGINE
     Indication: Product used for unknown indication
     Dates: start: 202407
  3. PROTAPHANE [Concomitant]
     Active Substance: INSULIN HUMAN
     Indication: Product used for unknown indication
     Dates: start: 2010
  4. AWIQLI [Concomitant]
     Indication: Product used for unknown indication
     Dates: start: 202409

REACTIONS (14)
  - Hepatic cirrhosis [Unknown]
  - Hepatitis [Unknown]
  - Coronary artery disease [Unknown]
  - Left ventricular dysfunction [Unknown]
  - Blood albumin increased [Unknown]
  - Erectile dysfunction [Unknown]
  - Diabetic neuropathy [Unknown]
  - Cataract [Unknown]
  - Diabetic retinopathy [Unknown]
  - Rotator cuff syndrome [Unknown]
  - Macular degeneration [Unknown]
  - Varices oesophageal [Unknown]
  - Gastric varices [Unknown]
  - Glycosylated haemoglobin increased [Unknown]

NARRATIVE: CASE EVENT DATE: 20100101
